FAERS Safety Report 4891880-4 (Version None)
Quarter: 2006Q1

REPORT INFORMATION
  Report Type: 
  Country: None (occurrence: None)
  Receive Date: 20060123
  Receipt Date: 20060110
  Transmission Date: 20060701
  Serious: Yes (Hospitalization)
  Sender: FDA-Public Use
  Company Number: 200610010BFR

PATIENT
  Age: 95 Year
  Sex: Male
  Weight: 52 kg

DRUGS (11)
  1. CIPROFLOXACIN [Suspect]
     Indication: OSTEOARTHRITIS
     Dosage: BID, ORAL
     Route: 048
     Dates: start: 20051107, end: 20051226
  2. AUGMENTIN '125' [Suspect]
     Indication: OSTEOARTHRITIS
     Dosage: 1 G, BID, ORAL
     Route: 048
     Dates: start: 20051107, end: 20051226
  3. PREVISCAN (FLUINDIONE) [Suspect]
     Dosage: 10 MG, TOTAL DAILY, ORAL
     Route: 048
     Dates: end: 20051114
  4. LASILIX [Concomitant]
  5. TRIATEC [Concomitant]
  6. TRINITRINE [Concomitant]
  7. VITAMIN B-12 [Concomitant]
  8. LAROXYL [Concomitant]
  9. ZYLORIC [Concomitant]
  10. KAYEXALATE [Concomitant]
  11. COLCHIMAX [Concomitant]

REACTIONS (6)
  - DRUG INTERACTION [None]
  - FALL [None]
  - GENERAL PHYSICAL HEALTH DETERIORATION [None]
  - INTERNATIONAL NORMALISED RATIO INCREASED [None]
  - PROTHROMBIN TIME SHORTENED [None]
  - SUBDURAL HAEMATOMA [None]
